FAERS Safety Report 7353495-8 (Version None)
Quarter: 2011Q1

REPORT INFORMATION
  Report Type: 
  Country: None (occurrence: None)
  Receive Date: 20110315
  Receipt Date: 20110309
  Transmission Date: 20110831
  Serious: Yes (Hospitalization, Other)
  Sender: FDA-Public Use
  Company Number: US-ABBOTT-11P-163-0710460-00

PATIENT
  Sex: Female
  Weight: 63.56 kg

DRUGS (9)
  1. HUMIRA [Suspect]
     Indication: RHEUMATOID ARTHRITIS
     Route: 058
     Dates: start: 20070101, end: 20100901
  2. TEMAZEPAM [Concomitant]
     Indication: INSOMNIA
     Route: 048
  3. LORTAB [Concomitant]
     Indication: ARTHRALGIA
     Route: 048
  4. METHOTREXATE [Concomitant]
     Indication: RHEUMATOID ARTHRITIS
     Route: 050
     Dates: end: 20100901
  5. CITALOPRAM HYDROBROMIDE [Concomitant]
     Indication: DEPRESSION
     Route: 048
  6. CITALOPRAM HYDROBROMIDE [Concomitant]
     Indication: ANXIETY
  7. SYNTHROID [Concomitant]
     Indication: HYPOTHYROIDISM
     Route: 048
  8. UNKNOWN BLOOD PRESSURE MEDICATION [Concomitant]
     Indication: HYPOTENSION
  9. HUMIRA [Suspect]
     Indication: OSTEOARTHRITIS

REACTIONS (9)
  - PANCREATIC DISORDER [None]
  - HYPOTENSION [None]
  - NUTRITIONAL CONDITION ABNORMAL [None]
  - WEIGHT DECREASED [None]
  - RENAL FAILURE [None]
  - HEPATIC FAILURE [None]
  - VOMITING [None]
  - MALNUTRITION [None]
  - INTESTINAL OBSTRUCTION [None]
